FAERS Safety Report 9053641 (Version 2)
Quarter: 2013Q2

REPORT INFORMATION
  Report Type: Report from Study
  Country: BR (occurrence: BR)
  Receive Date: 20130208
  Receipt Date: 20130507
  Transmission Date: 20140414
  Serious: Yes (Death, Other)
  Sender: FDA-Public Use
  Company Number: PHHY2013BR012053

PATIENT
  Age: 82 Year
  Sex: Female

DRUGS (3)
  1. FORADIL [Suspect]
  2. BAMIFIX [Concomitant]
     Indication: COUGH
     Dosage: 3 DF, DAILY WHEN EXPERIENCED EPISODE
     Dates: start: 2007
  3. FLUIMUCIL [Concomitant]
     Indication: NASOPHARYNGITIS
     Dosage: 1 DF (SACHET), DAILY
     Dates: start: 1999

REACTIONS (10)
  - Fall [Fatal]
  - Joint injury [Not Recovered/Not Resolved]
  - Arthralgia [Not Recovered/Not Resolved]
  - Breast pain [Not Recovered/Not Resolved]
  - Body mass index decreased [Not Recovered/Not Resolved]
  - Infarction [Unknown]
  - Depressed mood [Not Recovered/Not Resolved]
  - Vomiting [Not Recovered/Not Resolved]
  - Liver disorder [Unknown]
  - Dizziness [Not Recovered/Not Resolved]
